FAERS Safety Report 10044899 (Version 2)
Quarter: 2014Q2

REPORT INFORMATION
  Report Type: Report from Study
  Country: US (occurrence: US)
  Receive Date: 20140328
  Receipt Date: 20140425
  Transmission Date: 20141212
  Serious: Yes (Other)
  Sender: FDA-Public Use
  Company Number: US-VIIV HEALTHCARE LIMITED-A1066743A

PATIENT
  Age: 23 Year
  Sex: Female

DRUGS (3)
  1. EPIVIR [Suspect]
     Indication: HIV INFECTION
     Dosage: 100MG PER DAY
     Route: 048
     Dates: start: 20120524, end: 20130228
  2. VIREAD [Suspect]
     Indication: HIV INFECTION
     Dosage: 300MG PER DAY
     Route: 048
     Dates: start: 20120524, end: 20130228
  3. SUSTIVA [Suspect]
     Indication: HIV INFECTION
     Dosage: 60MG PER DAY
     Route: 048
     Dates: start: 20120524, end: 20130228

REACTIONS (5)
  - Amniotic cavity infection [Unknown]
  - Live birth [Unknown]
  - Exposure during pregnancy [Unknown]
  - Labour complication [Unknown]
  - Gastrooesophageal reflux disease [Unknown]
